FAERS Safety Report 5830317-5 (Version None)
Quarter: 2008Q3

REPORT INFORMATION
  Report Type: 
  Country: None (occurrence: None)
  Receive Date: 20080801
  Receipt Date: 20080723
  Transmission Date: 20090109
  Serious: Yes (Hospitalization)
  Sender: FDA-Public Use
  Company Number: FR-ROCHE-561832

PATIENT
  Sex: Female

DRUGS (7)
  1. ROCALTROL [Suspect]
     Indication: DRUG USE FOR UNKNOWN INDICATION
     Route: 048
     Dates: end: 20080215
  2. NEORECORMON [Suspect]
     Indication: DRUG USE FOR UNKNOWN INDICATION
     Dosage: FORM: INJECTABLE SOLUTION.
     Route: 065
     Dates: end: 20080211
  3. SINTROM [Suspect]
     Indication: DRUG USE FOR UNKNOWN INDICATION
     Route: 048
     Dates: end: 20080215
  4. SINTROM [Suspect]
     Route: 048
     Dates: start: 20080225
  5. RENAGEL [Suspect]
     Indication: DRUG USE FOR UNKNOWN INDICATION
     Route: 048
     Dates: end: 20080215
  6. LASIX [Suspect]
     Indication: DRUG USE FOR UNKNOWN INDICATION
     Route: 048
     Dates: end: 20080215
  7. HEPARIN [Concomitant]

REACTIONS (6)
  - EOSINOPHILIA [None]
  - HYPOTENSION [None]
  - PARAPSORIASIS [None]
  - PRURITUS [None]
  - RASH MORBILLIFORM [None]
  - VENOUS THROMBOSIS [None]
